FAERS Safety Report 5986019-8 (Version None)
Quarter: 2008Q4

REPORT INFORMATION
  Report Type: 
  Country: None (occurrence: None)
  Receive Date: 20081205
  Receipt Date: 20081205
  Transmission Date: 20090506
  Serious: No
  Sender: FDA-Public Use
  Company Number: None

PATIENT
  Age: 62 Year
  Sex: Male
  Weight: 68.0396 kg

DRUGS (1)
  1. OMEPRAZOLE [Suspect]
     Indication: DUODENAL ULCER
     Dosage: 1 PILL DAILY PO
     Route: 048
     Dates: start: 20081027, end: 20081203

REACTIONS (6)
  - CHILLS [None]
  - FEELING COLD [None]
  - HEADACHE [None]
  - MIGRAINE [None]
  - NAUSEA [None]
  - RENAL PAIN [None]
